FAERS Safety Report 20343656 (Version 2)
Quarter: 2022Q1

REPORT INFORMATION
  Report Type: Report from Study
  Country: BR (occurrence: BR)
  Receive Date: 20220118
  Receipt Date: 20220202
  Transmission Date: 20220423
  Serious: Yes (Other)
  Sender: FDA-Public Use
  Company Number: BR-SA-SAC20220113000394

PATIENT
  Age: 60 Year
  Sex: Female
  Weight: 56 kg

DRUGS (1)
  1. DUPILUMAB [Suspect]
     Active Substance: DUPILUMAB
     Indication: Chronic rhinosinusitis with nasal polyps
     Dosage: 300 MG, QOW
     Route: 058
     Dates: start: 20211121

REACTIONS (2)
  - Diverticulitis [Unknown]
  - Product use issue [Unknown]
